FAERS Safety Report 14291314 (Version 1)
Quarter: 2017Q4

REPORT INFORMATION
  Report Type: Spontaneous
  Country: JP (occurrence: JP)
  Receive Date: 20171215
  Receipt Date: 20171215
  Transmission Date: 20180321
  Serious: Yes (Other)
  Sender: FDA-Public Use
  Company Number: PHHY2017JP183301

PATIENT

DRUGS (1)
  1. SECUKINUMAB. [Suspect]
     Active Substance: SECUKINUMAB
     Indication: PSORIASIS
     Dosage: 300 MG (AT WEEK 0, 1, 2, 3 AND 4 AS INITIAL LOADING REGIMEN AND THEREAFTER EVERY 4 WEEKS)
     Route: 058

REACTIONS (1)
  - Cellulitis [Recovered/Resolved]
